FAERS Safety Report 9760984 (Version 2)
Quarter: 2013Q4

REPORT INFORMATION
  Report Type: Spontaneous
  Country: CH (occurrence: CH)
  Receive Date: 20131216
  Receipt Date: 20131217
  Transmission Date: 20140711
  Serious: Yes (Other)
  Sender: FDA-Public Use
  Company Number: CH-BAYER-2013-149585

PATIENT
  Age: 75 Year
  Sex: Female

DRUGS (1)
  1. ASPIRIN CARDIO [Suspect]
     Route: 048

REACTIONS (2)
  - Transient ischaemic attack [None]
  - Transient ischaemic attack [None]
